FAERS Safety Report 22386424 (Version 1)
Quarter: 2023Q2

REPORT INFORMATION
  Report Type: Other
  Country: GB (occurrence: GB)
  Receive Date: 20230531
  Receipt Date: 20230531
  Transmission Date: 20230721
  Serious: Yes (Other)
  Sender: FDA-Public Use
  Company Number: None

PATIENT
  Sex: Female

DRUGS (3)
  1. PREDNISOLONE [Suspect]
     Active Substance: PREDNISOLONE
     Indication: Autoimmune hepatitis
     Dosage: 10 MILLIGRAM, QD; ORDINARY TABLETS
     Route: 065
  2. PREDNISOLONE SODIUM PHOSPHATE [Suspect]
     Active Substance: PREDNISOLONE SODIUM PHOSPHATE
     Indication: Autoimmune hepatitis
     Dosage: 5 MILLIGRAM, BID; 5 MG, BID (TAKING 2 TABLETS PER DAY FOR PAST THREE DAYS)
     Route: 065
  3. PREDNISOLONE [Concomitant]
     Active Substance: PREDNISOLONE
     Indication: Autoimmune hepatitis
     Dosage: UNK; LIQUID FORM OF PREDNISOLONE
     Route: 065

REACTIONS (4)
  - Abdominal pain upper [Unknown]
  - Abdominal pain upper [None]
  - Condition aggravated [None]
  - Off label use [Unknown]
